FAERS Safety Report 14421326 (Version 1)
Quarter: 2018Q1

REPORT INFORMATION
  Report Type: Spontaneous
  Country: DK (occurrence: DK)
  Receive Date: 20180122
  Receipt Date: 20180122
  Transmission Date: 20180509
  Serious: Yes (Death, Congenital Anomaly, Other)
  Sender: FDA-Public Use
  Company Number: DK-BIOGEN-2018BI00511425

PATIENT

DRUGS (1)
  1. AVONEX [Suspect]
     Active Substance: INTERFERON BETA-1A
     Indication: MULTIPLE SCLEROSIS
     Dosage: STYRKE(STRENGTH): 30 MIKROGRAM/ 0.5 ML
     Route: 064
     Dates: start: 201212, end: 20161024

REACTIONS (3)
  - Foetal exposure during pregnancy [Recovered/Resolved]
  - Meningomyelocele [Fatal]
  - Abortion induced [Fatal]

NARRATIVE: CASE EVENT DATE: 20170213
